FAERS Safety Report 10058501 (Version 1)
Quarter: 2014Q2

REPORT INFORMATION
  Report Type: Spontaneous
  Country: US (occurrence: US)
  Receive Date: 20140404
  Receipt Date: 20140404
  Transmission Date: 20141212
  Serious: Yes (Other)
  Sender: FDA-Public Use
  Company Number: US-MERCK-1403USA011763

PATIENT
  Sex: Female

DRUGS (1)
  1. ZEMURON [Suspect]
     Indication: LABOUR INDUCTION
     Route: 008

REACTIONS (7)
  - Vacuum extractor delivery [Unknown]
  - Traumatic delivery [Unknown]
  - Pyrexia [Unknown]
  - Nightmare [Unknown]
  - Fracture [Unknown]
  - Fear [Unknown]
  - Urethral injury [Unknown]
